FAERS Safety Report 10724113 (Version 1)
Quarter: 2015Q1

REPORT INFORMATION
  Report Type: Spontaneous
  Country: US (occurrence: None)
  Receive Date: 20150116
  Receipt Date: 20150116
  Transmission Date: 20150721
  Serious: Yes (Other)
  Sender: FDA-Public Use
  Company Number: None

PATIENT
  Age: 13 Year
  Sex: Female
  Weight: 47.63 kg

DRUGS (1)
  1. STRATTERA [Suspect]
     Active Substance: ATOMOXETINE HYDROCHLORIDE
     Indication: DISTURBANCE IN ATTENTION
     Dosage: 2  TWICE DAILY TAKEN BY MOUTH
     Route: 048
     Dates: start: 20020101, end: 20050105

REACTIONS (11)
  - Loss of consciousness [None]
  - Emotional disorder [None]
  - Syncope [None]
  - Quality of life decreased [None]
  - Self injurious behaviour [None]
  - Panic attack [None]
  - Product quality issue [None]
  - Depression [None]
  - Suicidal ideation [None]
  - Anxiety [None]
  - Fall [None]

NARRATIVE: CASE EVENT DATE: 20150115
